FAERS Safety Report 5122964-3 (Version None)
Quarter: 2006Q4

REPORT INFORMATION
  Report Type: 
  Country: None (occurrence: None)
  Receive Date: 20061005
  Receipt Date: 20060922
  Transmission Date: 20070319
  Serious: Yes (Other)
  Sender: FDA-Public Use
  Company Number: 2006118850

PATIENT
  Sex: Female
  Weight: 73.0291 kg

DRUGS (10)
  1. NEURONTIN [Suspect]
     Indication: NEUROPATHY PERIPHERAL
  2. LIPITOR [Suspect]
     Indication: BLOOD CHOLESTEROL INCREASED
  3. LYRICA [Suspect]
     Indication: NEUROPATHY PERIPHERAL
     Dosage: 200 MG (50 MG, 4 IN 1 D)
     Dates: start: 20060101
  4. TOPAMAX [Suspect]
     Indication: WEIGHT CONTROL
  5. CRESTOR [Suspect]
     Indication: BLOOD CHOLESTEROL INCREASED
  6. ZOCOR [Suspect]
     Indication: BLOOD CHOLESTEROL INCREASED
  7. IBUPROFEN [Concomitant]
  8. PROZAC [Concomitant]
  9. LEVOTHYROXINE SODIUM [Concomitant]
  10. LORAZEPAM [Concomitant]

REACTIONS (8)
  - ALOPECIA [None]
  - BLOOD CHOLESTEROL INCREASED [None]
  - DIABETES MELLITUS [None]
  - HYPERTENSION [None]
  - INADEQUATE ANALGESIA [None]
  - INCREASED APPETITE [None]
  - MUSCLE SPASMS [None]
  - OVERWEIGHT [None]
